FAERS Safety Report 6281926 (Version 8)
Quarter: 2013Q3

REPORT INFORMATION
  Report Type: Spontaneous
  Country: US (occurrence: US)
  Receive Date: 20070406
  Receipt Date: 20130913
  Transmission Date: 20140515
  Serious: Yes (Other)
  Sender: FDA-Public Use
  Company Number: PHEH2007US03696

PATIENT
  Age: 71 Year
  Sex: Male
  Weight: 63.04 kg

DRUGS (20)
  1. ZOMETA [Suspect]
     Dosage: 4 MG, QMO
     Route: 042
     Dates: start: 200601
  2. CALCIUM [Concomitant]
  3. ALBUTEROL [Concomitant]
  4. ATENOLOL [Concomitant]
  5. ETODOLAC [Concomitant]
  6. GABAPENTIN [Concomitant]
  7. LIDOCAINE [Concomitant]
  8. LISINOPRIL [Concomitant]
  9. OMEPRAZOLE [Concomitant]
  10. TRAMADOL [Concomitant]
  11. TEMAZEPAM [Concomitant]
  12. TRAZODONE [Concomitant]
  13. CHEMOTHERAPEUTICS NOS [Concomitant]
  14. CLOBETASOL PROPIONATE [Concomitant]
  15. CLOTRIMAZOLE [Concomitant]
     Dosage: 1 %, UNK
     Route: 061
  16. RADIATION THERAPY [Concomitant]
  17. DECADRON [Concomitant]
     Dosage: 40 MG, UNK
  18. IBUPROFEN [Concomitant]
  19. MOTRIN [Concomitant]
     Dosage: 800 MG, UNK
  20. INDOMETHACIN [Concomitant]

REACTIONS (44)
  - Spinal compression fracture [Unknown]
  - Osteonecrosis of jaw [Unknown]
  - General physical health deterioration [Unknown]
  - Pain [Unknown]
  - Anxiety [Unknown]
  - Decreased interest [Unknown]
  - Pain in jaw [Unknown]
  - Bone disorder [Unknown]
  - Osteitis [Unknown]
  - Medical device complication [Unknown]
  - Dental caries [Unknown]
  - Bone lesion [Unknown]
  - Tooth loss [Unknown]
  - Bone pain [Unknown]
  - Osteolysis [Unknown]
  - Poor dental condition [Unknown]
  - Impaired healing [Unknown]
  - Cellulitis [Unknown]
  - Bone erosion [Unknown]
  - Neutrophilic dermatosis [Unknown]
  - Left ventricular hypertrophy [Unknown]
  - Cheilitis [Unknown]
  - Mouth ulceration [Unknown]
  - Herpes zoster [Unknown]
  - Mitral valve incompetence [Unknown]
  - Ventricular extrasystoles [Unknown]
  - Bundle branch block right [Unknown]
  - Electrocardiogram T wave inversion [Unknown]
  - Inguinal hernia [Unknown]
  - Coronary artery disease [Unknown]
  - Pulmonary fibrosis [Unknown]
  - Hypertension [Unknown]
  - Renal cyst [Unknown]
  - Atelectasis [Unknown]
  - Cardiomegaly [Unknown]
  - Pleural effusion [Unknown]
  - Vascular calcification [Unknown]
  - Exostosis [Unknown]
  - Arthralgia [Unknown]
  - Joint swelling [Unknown]
  - Cataract [Unknown]
  - Anaemia [Unknown]
  - Rash papular [Unknown]
  - Dyslipidaemia [Unknown]
